FAERS Safety Report 6274092-1 (Version None)
Quarter: 2009Q3

REPORT INFORMATION
  Report Type: 
  Country: None (occurrence: None)
  Receive Date: 20090720
  Receipt Date: 20090707
  Transmission Date: 20100115
  Serious: Yes (Other)
  Sender: FDA-Public Use
  Company Number: PHHY2009BR27641

PATIENT
  Sex: Male

DRUGS (1)
  1. GALVUS MET [Suspect]
     Dosage: 850/50 MG

REACTIONS (1)
  - INFARCTION [None]
